FAERS Safety Report 9527696 (Version 1)
Quarter: 2013Q1

REPORT INFORMATION
  Report Type: Spontaneous
  Country: US (occurrence: None)
  Receive Date: 20130314
  Receipt Date: 20130314
  Transmission Date: 20140127
  Serious: Yes (Other)
  Sender: FDA-Public Use
  Company Number: 2012PROUSA02255

PATIENT
  Age: 61 Year
  Sex: Male
  Weight: 72.7 kg

DRUGS (5)
  1. PROVENGE (SIPULEUCEL-T) SUSPENSION, 250ML [Suspect]
     Indication: PROSTATE CANCER METASTATIC
     Dosage: 250 ML, SINGLE, INTRAVENOUS
     Route: 042
     Dates: start: 20120824, end: 20120824
  2. ALEVE (NAPROXEN SODIUM) [Concomitant]
  3. NILUTAMIDE (NILUTAMIDE) [Concomitant]
  4. CALCIUM (CALCIUM) [Concomitant]
  5. VITAMIN B12 (CYANOCOBALAMIN) [Concomitant]

REACTIONS (1)
  - Disease progression [None]
